FAERS Safety Report 10231882 (Version 6)
Quarter: 2014Q4

REPORT INFORMATION
  Report Type: Report from Study
  Country: US (occurrence: US)
  Receive Date: 20140612
  Receipt Date: 20141010
  Transmission Date: 20150528
  Serious: Yes (Other)
  Sender: FDA-Public Use
  Company Number: US-BIOGENIDEC-2014BI055270

PATIENT
  Age: 48 Year
  Sex: Female

DRUGS (1)
  1. AVONEX [Suspect]
     Active Substance: INTERFERON BETA-1A
     Indication: MULTIPLE SCLEROSIS
     Route: 030
     Dates: start: 20120717, end: 20130801

REACTIONS (15)
  - Chills [Recovered/Resolved]
  - Depression [Not Recovered/Not Resolved]
  - Atrophy [Recovered/Resolved]
  - Fibromyalgia [Unknown]
  - Injection site vesicles [Recovered/Resolved]
  - Squamous cell carcinoma of skin [Recovered/Resolved]
  - Speech disorder [Recovered/Resolved]
  - Adverse event [Unknown]
  - Vein disorder [Recovered/Resolved]
  - Pain [Recovered/Resolved]
  - Migraine [Recovered/Resolved]
  - Gait disturbance [Recovered/Resolved]
  - Blister [Recovered/Resolved]
  - Influenza like illness [Recovered/Resolved]
  - Neuropathy peripheral [Unknown]

NARRATIVE: CASE EVENT DATE: 20120717
